FAERS Safety Report 8434150-X (Version None)
Quarter: 2012Q2

REPORT INFORMATION
  Report Type: 
  Country: None (occurrence: None)
  Receive Date: 20120613
  Receipt Date: 20120606
  Transmission Date: 20120825
  Serious: Yes (Death)
  Sender: FDA-Public Use
  Company Number: US-ACTELION-A-US2012-59915

PATIENT

DRUGS (4)
  1. TREPROSTINIL [Concomitant]
  2. TRACLEER [Suspect]
     Indication: PULMONARY ARTERIAL HYPERTENSION
     Dosage: UNK
     Route: 048
     Dates: start: 20020520, end: 20120502
  3. PLAVIX [Concomitant]
  4. VENTAVIS [Suspect]
     Indication: PULMONARY ARTERIAL HYPERTENSION
     Route: 055

REACTIONS (4)
  - PULMONARY ARTERIAL HYPERTENSION [None]
  - DYSPNOEA [None]
  - DISEASE PROGRESSION [None]
  - COR PULMONALE [None]
